FAERS Safety Report 6077549-1 (Version None)
Quarter: 2009Q1

REPORT INFORMATION
  Report Type: 
  Country: None (occurrence: None)
  Receive Date: 20090211
  Receipt Date: 20090128
  Transmission Date: 20090719
  Serious: Yes (Hospitalization)
  Sender: FDA-Public Use
  Company Number: 005355

PATIENT
  Age: 79 Year
  Sex: Female

DRUGS (10)
  1. PLETAL [Suspect]
     Indication: ARTERIOSCLEROSIS OBLITERANS
     Dosage: 100 MG, BID ORAL
     Route: 048
     Dates: start: 20081227, end: 20090101
  2. PREMINENT (LOSARTAN POTASSIUM_HYDROCHLOROTHIAZIDE) TABLET [Concomitant]
  3. PLAVIX [Concomitant]
  4. BAYASPIRIN (ACETYLSALICYLIC ACID) TABLET [Concomitant]
  5. LASIX [Concomitant]
  6. NORVASK OD (AMLODIPOINE BESILATE) TABLET [Concomitant]
  7. CARVEDILOL [Concomitant]
  8. ALLOPURINOL [Concomitant]
  9. FERROMIA (FERROUS CITRATE) TABLET [Concomitant]
  10. LIPITOR [Concomitant]

REACTIONS (4)
  - CHEST PAIN [None]
  - RENAL FAILURE ACUTE [None]
  - SINUS BRADYCARDIA [None]
  - TACHYCARDIA [None]
